FAERS Safety Report 6864674-8 (Version None)
Quarter: 2010Q3

REPORT INFORMATION
  Report Type: 
  Country: None (occurrence: None)
  Receive Date: 20100720
  Receipt Date: 20100708
  Transmission Date: 20110219
  Serious: Yes (Hospitalization, Other)
  Sender: FDA-Public Use
  Company Number: 7010488

PATIENT
  Age: 46 Year
  Sex: Female

DRUGS (7)
  1. REBIF [Suspect]
     Indication: PRODUCT USED FOR UNKNOWN INDICATION
     Dosage: 44 MCG, 3 IN 1 WK, SUBCUTANEOUS
     Route: 058
     Dates: start: 20090708
  2. ALTACE [Concomitant]
  3. CLONIDINE [Concomitant]
  4. INSULIN [Concomitant]
  5. GLUCOPHAGE [Concomitant]
  6. NEURONTIN [Concomitant]
  7. IBUPROFEN [Concomitant]

REACTIONS (6)
  - BLOOD PRESSURE INCREASED [None]
  - BREAST ABSCESS [None]
  - HEADACHE [None]
  - MASTITIS [None]
  - PNEUMONIA [None]
  - STAPHYLOCOCCAL INFECTION [None]
